FAERS Safety Report 20293780 (Version 2)
Quarter: 2022Q1

REPORT INFORMATION
  Report Type: Spontaneous
  Country: JP (occurrence: JP)
  Receive Date: 20220104
  Receipt Date: 20220124
  Transmission Date: 20220423
  Serious: Yes (Death, Hospitalization, Other)
  Sender: FDA-Public Use
  Company Number: A202100753-003

PATIENT
  Age: 71 Year
  Sex: Male

DRUGS (9)
  1. BENDAMUSTINE HYDROCHLORIDE [Suspect]
     Active Substance: BENDAMUSTINE HYDROCHLORIDE
     Indication: Diffuse large B-cell lymphoma
     Dosage: 70 MG/M2, (CYCLE 1 PBR THERAPY)
     Route: 041
  2. BENDAMUSTINE HYDROCHLORIDE [Suspect]
     Active Substance: BENDAMUSTINE HYDROCHLORIDE
     Dosage: 70 MG/M2, (CYCLE 2 PBR THERAPY)
     Route: 041
  3. BENDAMUSTINE HYDROCHLORIDE [Suspect]
     Active Substance: BENDAMUSTINE HYDROCHLORIDE
     Dosage: 70 MG/M2, (CYCLE 4 PBR THERAPY)
     Route: 041
     Dates: start: 20211201
  4. RITUXAN [Suspect]
     Active Substance: RITUXIMAB
     Indication: Diffuse large B-cell lymphoma
     Dosage: UNK (CYCLE 1 PBR THERAPY)
     Route: 041
  5. RITUXAN [Suspect]
     Active Substance: RITUXIMAB
     Dosage: UNK (CYCLE 2 PBR THERAPY)
     Route: 041
  6. RITUXAN [Suspect]
     Active Substance: RITUXIMAB
     Dosage: UNK (CYCLE 4 PBR THERAPY)
     Route: 041
     Dates: start: 20211201
  7. POLIVY [Suspect]
     Active Substance: POLATUZUMAB VEDOTIN-PIIQ
     Indication: Diffuse large B-cell lymphoma
     Dosage: UNK (CYCLE 1 PBR THERAPY)
     Route: 041
  8. POLIVY [Suspect]
     Active Substance: POLATUZUMAB VEDOTIN-PIIQ
     Dosage: UNK (CYCLE 2 PBR THERAPY)
     Route: 041
  9. POLIVY [Suspect]
     Active Substance: POLATUZUMAB VEDOTIN-PIIQ
     Dosage: UNK (CYCLE 4 PBR THERAPY)
     Route: 041
     Dates: start: 20211201

REACTIONS (5)
  - Pneumonia cytomegaloviral [Recovering/Resolving]
  - Lymphocyte count decreased [Unknown]
  - Neutrophil count decreased [Unknown]
  - Cytomegalovirus viraemia [Recovered/Resolved]
  - Disease progression [Fatal]

NARRATIVE: CASE EVENT DATE: 20211203
